FAERS Safety Report 7578108-1 (Version None)
Quarter: 2011Q2

REPORT INFORMATION
  Report Type: 
  Country: None (occurrence: None)
  Receive Date: 20110621
  Receipt Date: 20110606
  Transmission Date: 20111010
  Serious: Yes (Hospitalization)
  Sender: FDA-Public Use
  Company Number: 1000019306

PATIENT
  Age: 49 Year
  Sex: Male
  Weight: 62 kg

DRUGS (9)
  1. VALIUM (DIAZEPAM) (SOLUTION) (DIAZEPAM) [Concomitant]
  2. DEPAKOTE [Suspect]
  3. FUCIDINE (FUSIDIC ACID) (POWDER) (FUSIDIC ACID) [Concomitant]
  4. CITALOPRAM HYDROBROMIDE [Suspect]
     Dosage: 20 MG (20 MG,1 IN 1 D),INTRAVENOUS (NOT OTHERWISE SPECIFIED)
     Route: 042
     Dates: start: 20110215, end: 20110224
  5. VITAMIN B1 B6 (THIAMINE, PYRIDOXINE) (THIAMINE, PYRIDOXINE) [Concomitant]
  6. PYOSTACINE (PRISTINAMYCIN) TABLETS [Concomitant]
  7. DAKTARIN ORAL (MICONAZOLE) (GEL) (MICONAZOLE) [Concomitant]
  8. NICOBION (NICOTINAMIDE) (TABLETS) (NICOTINAMIDE) [Concomitant]
  9. NICOPATCH (NICOTINE) (POULTICE OR PATCH) (NICOTINE) [Concomitant]

REACTIONS (2)
  - INFLAMMATION [None]
  - PHLEBITIS [None]
